FAERS Safety Report 5054387-X (Version None)
Quarter: 2006Q3

REPORT INFORMATION
  Report Type: 
  Country: None (occurrence: None)
  Receive Date: 20060713
  Receipt Date: 20060627
  Transmission Date: 20061208
  Serious: Yes (Other)
  Sender: FDA-Public Use
  Company Number: DSA_60984_2006

PATIENT

DRUGS (1)
  1. DIASTAT [Suspect]
     Dosage: 20 MG ONCE RC

REACTIONS (4)
  - DRUG DISPENSING ERROR [None]
  - INCORRECT DOSE ADMINISTERED [None]
  - PANIC REACTION [None]
  - RESPIRATORY DEPRESSION [None]
